FAERS Safety Report 25657087 (Version 1)
Quarter: 2025Q3

REPORT INFORMATION
  Report Type: Spontaneous
  Country: EU (occurrence: EU)
  Receive Date: 20250808
  Receipt Date: 20250808
  Transmission Date: 20251021
  Serious: Yes (Other)
  Sender: ASTELLAS
  Company Number: EU-GILEAD-2025-0719535

PATIENT
  Age: 62 Year
  Sex: Female

DRUGS (3)
  1. AMPHOTERICIN B [Suspect]
     Active Substance: AMPHOTERICIN B
     Indication: Candida infection
     Dosage: 5 MG/KG, QD (INITIAL DOSE OF 465 MG)
     Route: 065
  2. AMPHOTERICIN B DEOXYCHOLATE [Suspect]
     Active Substance: AMPHOTERICIN B DEOXYCHOLATE
     Indication: Candida infection
     Route: 065
  3. FLUCYTOSINE [Concomitant]
     Active Substance: FLUCYTOSINE
     Indication: Product used for unknown indication
     Route: 065

REACTIONS (9)
  - Respiratory failure [Unknown]
  - Shock [Unknown]
  - Coma scale abnormal [Unknown]
  - Hepatic failure [Unknown]
  - Renal failure [Unknown]
  - Abdominal pain [Unknown]
  - Vomiting [Unknown]
  - Blood pressure systolic decreased [Unknown]
  - Incorrect product formulation administered [Recovered/Resolved]
